FAERS Safety Report 9636167 (Version 3)
Quarter: 2013Q4

REPORT INFORMATION
  Report Type: Spontaneous
  Country: US (occurrence: US)
  Receive Date: 20131021
  Receipt Date: 20131213
  Transmission Date: 20140711
  Serious: Yes (Other)
  Sender: FDA-Public Use
  Company Number: US-BAYER-2013-125906

PATIENT
  Age: 29 Year
  Sex: Female
  Weight: 111.57 kg

DRUGS (1)
  1. MIRENA [Suspect]
     Indication: CONTRACEPTION
     Dosage: 20 MCG/24HR, CONT
     Route: 015
     Dates: start: 20121107, end: 20131018

REACTIONS (7)
  - Pregnancy with contraceptive device [Not Recovered/Not Resolved]
  - Embedded device [None]
  - Drug ineffective [None]
  - Abdominal pain upper [None]
  - Abdominal pain lower [None]
  - Genital haemorrhage [None]
  - Breech presentation [None]
